FAERS Safety Report 7916972-4 (Version None)
Quarter: 2011Q4

REPORT INFORMATION
  Report Type: 
  Country: None (occurrence: None)
  Receive Date: 20111116
  Receipt Date: 20111116
  Transmission Date: 20120403
  Serious: No
  Sender: FDA-Public Use
  Company Number: None

PATIENT
  Age: 62 Year
  Sex: Female
  Weight: 65.77 kg

DRUGS (1)
  1. LEVOTHYROXINE SODIUM [Suspect]
     Dosage: 50 MCG
     Route: 048

REACTIONS (8)
  - DYSPNOEA [None]
  - HEADACHE [None]
  - MOOD ALTERED [None]
  - FATIGUE [None]
  - CHEST PAIN [None]
  - PALPITATIONS [None]
  - TREMOR [None]
  - HYPERHIDROSIS [None]
